FAERS Safety Report 14418467 (Version 2)
Quarter: 2018Q3

REPORT INFORMATION
  Report Type: Spontaneous
  Country: US (occurrence: US)
  Receive Date: 20180122
  Receipt Date: 20180713
  Transmission Date: 20181010
  Serious: No
  Sender: FDA-Public Use
  Company Number: US-INTERCEPT-PMOCA2017001499

PATIENT

DRUGS (2)
  1. OCALIVA [Suspect]
     Active Substance: OBETICHOLIC ACID
     Indication: PRIMARY BILIARY CHOLANGITIS
     Dosage: 5 MG, QD
     Route: 048
     Dates: start: 20161117
  2. OCALIVA [Suspect]
     Active Substance: OBETICHOLIC ACID
     Dosage: 5 MG, QD
     Route: 048
     Dates: start: 201708

REACTIONS (11)
  - Drug dose omission [Unknown]
  - Hysterectomy [Unknown]
  - Shoulder operation [Unknown]
  - Fatigue [Recovering/Resolving]
  - Genital herpes [Unknown]
  - Polyp [Unknown]
  - Pruritus [Recovered/Resolved]
  - Haemorrhage [Unknown]
  - Blood alkaline phosphatase increased [Unknown]
  - Peripheral swelling [Recovering/Resolving]
  - Pruritus genital [Not Recovered/Not Resolved]

NARRATIVE: CASE EVENT DATE: 2017
